FAERS Safety Report 9144099 (Version 3)
Quarter: 2013Q1

REPORT INFORMATION
  Report Type: Spontaneous
  Country: JP (occurrence: JP)
  Receive Date: 20130306
  Receipt Date: 20130320
  Transmission Date: 20140127
  Serious: Yes (Death, Other)
  Sender: FDA-Public Use
  Company Number: JP-PFIZER INC-2013076731

PATIENT
  Age: 76 Year
  Sex: Female

DRUGS (1)
  1. GABAPEN [Suspect]
     Indication: PAIN
     Dosage: 600 MG, DAILY
     Route: 048

REACTIONS (1)
  - Road traffic accident [Fatal]
